FAERS Safety Report 17068946 (Version 1)
Quarter: 2019Q4

REPORT INFORMATION
  Report Type: Spontaneous
  Country: US (occurrence: US)
  Receive Date: 20191024
  Receipt Date: 20191024
  Transmission Date: 20200122
  Serious: No
  Sender: FDA-Public Use
  Company Number: None

PATIENT
  Age: 70 Year
  Sex: Female
  Weight: 47.17 kg

DRUGS (1)
  1. OXYCODONE 5 MG [Suspect]
     Active Substance: OXYCODONE
     Indication: CANCER PAIN
     Dosage: ?          OTHER FREQUENCY:1-2 Q 4;?
     Route: 048
     Dates: start: 20190926, end: 20191001

REACTIONS (5)
  - Self-medication [None]
  - Drug ineffective [None]
  - Product formulation issue [None]
  - Somnolence [None]
  - Expired product administered [None]
